FAERS Safety Report 8588773 (Version 6)
Quarter: 2012Q4

REPORT INFORMATION
  Report Type: 
  Country: US (occurrence: US)
  Receive Date: 20120531
  Receipt Date: 20121116
  Transmission Date: 20130627
  Serious: Yes (Death, Hospitalization, Disabling, Other)
  Sender: FDA-Public Use
  Company Number: US-009507513-1205USA04580

PATIENT

DRUGS (9)
  1. FOSAMAX PLUS D [Suspect]
     Dosage: 70 mg, UNK
     Route: 048
     Dates: start: 20060126, end: 20070713
  2. FOSAMAX [Suspect]
     Indication: OSTEOPOROSIS
     Dosage: 70 mg, UNK
     Route: 048
     Dates: start: 20070809, end: 20080201
  3. FOSAMAX [Suspect]
     Indication: OSTEOPENIA
  4. FOSAMAX [Suspect]
     Indication: OSTEOPOROSIS
     Dosage: 70 mg, UNK
     Route: 048
     Dates: start: 20080310, end: 20111103
  5. ALENDRONATE SODIUM [Suspect]
     Indication: OSTEOPOROSIS
     Dosage: 70 mg, UNK
     Route: 048
     Dates: start: 20080310, end: 20111103
  6. VITAMINS (UNSPECIFIED) [Concomitant]
     Dosage: UNK
     Dates: start: 1997, end: 20111205
  7. PRILOSEC [Concomitant]
     Dosage: UNK
     Dates: start: 20040101, end: 20111205
  8. DIOVAN HCT [Concomitant]
     Indication: HYPERTENSION
     Dosage: UNK
     Dates: start: 20040101, end: 201112
  9. PROTONIX [Concomitant]
     Dosage: UNK
     Dates: start: 20060107, end: 200602

REACTIONS (49)
  - Open reduction of fracture [Unknown]
  - Femur fracture [Unknown]
  - Femur fracture [Unknown]
  - Multi-organ failure [Fatal]
  - Bacterial sepsis [Fatal]
  - Pneumonia [Fatal]
  - Hip fracture [Unknown]
  - Osteoporosis [Unknown]
  - Stress fracture [Unknown]
  - Squamous cell carcinoma [Unknown]
  - Low turnover osteopathy [Unknown]
  - Cystitis [Unknown]
  - Urinary tract infection [Unknown]
  - Infection [Unknown]
  - Biopsy skin [Unknown]
  - Chronic obstructive pulmonary disease [Not Recovered/Not Resolved]
  - Arthritis [Unknown]
  - Diabetes mellitus [Unknown]
  - Chest pain [Unknown]
  - Insomnia [Unknown]
  - Anaemia [Unknown]
  - Malignant tumour excision [Unknown]
  - Dermal cyst [Unknown]
  - Skin lesion [Unknown]
  - Actinic keratosis [Unknown]
  - Inflammation [Unknown]
  - Osteoma cutis [Unknown]
  - Bladder catheterisation [Unknown]
  - Dacryocystitis [Unknown]
  - Conjunctivitis allergic [Unknown]
  - Fall [Unknown]
  - Chest discomfort [Unknown]
  - Kyphosis [Unknown]
  - Fungal infection [Unknown]
  - Fatigue [Unknown]
  - Skin ulcer [Unknown]
  - Cellulitis [Unknown]
  - Dyspnoea [Unknown]
  - Hyponatraemia [Unknown]
  - Anaemia [Unknown]
  - Blood urine present [Unknown]
  - Asthma [Unknown]
  - Weight decreased [Unknown]
  - Constipation [Unknown]
  - Aphthous stomatitis [Unknown]
  - Muscle spasms [Unknown]
  - Pulmonary hypertension [Unknown]
  - Decubitus ulcer [Unknown]
  - Pubis fracture [Unknown]
